FAERS Safety Report 6387635-4 (Version None)
Quarter: 2009Q4

REPORT INFORMATION
  Report Type: 
  Country: None (occurrence: None)
  Receive Date: 20091005
  Receipt Date: 20090904
  Transmission Date: 20100525
  Serious: No
  Sender: FDA-Public Use
  Company Number: US-BAYER-200932625NA

PATIENT
  Age: 86 Year
  Sex: Female

DRUGS (2)
  1. AVELOX [Suspect]
     Indication: COUGH
     Route: 048
     Dates: start: 20090903
  2. STEROIDS NOS [Concomitant]

REACTIONS (3)
  - BLOOD GLUCOSE DECREASED [None]
  - DIZZINESS [None]
  - DYSPHONIA [None]
